FAERS Safety Report 15400573 (Version 1)
Quarter: 2018Q3

REPORT INFORMATION
  Report Type: Report from Study
  Country: US (occurrence: US)
  Receive Date: 20180919
  Receipt Date: 20180919
  Transmission Date: 20181010
  Serious: Yes (Life-Threatening, Hospitalization, Other)
  Sender: FDA-Public Use
  Company Number: US-BRISTOL-MYERS SQUIBB COMPANY-BMS-2018-083944

PATIENT
  Age: 20 Year
  Sex: Female
  Weight: 54.4 kg

DRUGS (1)
  1. DASATINIB. [Suspect]
     Active Substance: DASATINIB
     Indication: B PRECURSOR TYPE ACUTE LEUKAEMIA
     Dosage: TOTAL DOSE  ADMINISTERED THIS COURSE 5000 MG
     Route: 065

REACTIONS (5)
  - Shock [Unknown]
  - Sepsis [Recovered/Resolved]
  - Lung infection [Unknown]
  - Febrile neutropenia [Unknown]
  - Pleural effusion [Unknown]

NARRATIVE: CASE EVENT DATE: 20180718
